FAERS Safety Report 5556177-8 (Version None)
Quarter: 2007Q4

REPORT INFORMATION
  Report Type: 
  Country: None (occurrence: None)
  Receive Date: 20071211
  Receipt Date: 20071130
  Transmission Date: 20080405
  Serious: Yes (Other)
  Sender: FDA-Public Use
  Company Number: 07122333

PATIENT
  Age: 21 Year

DRUGS (2)
  1. CARBAMAZEPINE [Suspect]
  2. CARBATROL [Suspect]

REACTIONS (2)
  - INTERCEPTED DRUG DISPENSING ERROR [None]
  - MEDICATION ERROR [None]
